FAERS Safety Report 16482412 (Version 1)
Quarter: 2019Q2

REPORT INFORMATION
  Report Type: Spontaneous
  Country: US (occurrence: US)
  Receive Date: 20190627
  Receipt Date: 20190627
  Transmission Date: 20190711
  Serious: No
  Sender: FDA-Public Use
  Company Number: US-APOTEX-2018AP019259

PATIENT
  Age: 60 Year
  Sex: Female

DRUGS (1)
  1. CYCLOSPORINE. [Suspect]
     Active Substance: CYCLOSPORINE
     Indication: BENIGN FAMILIAL PEMPHIGUS
     Dosage: UNK
     Route: 065

REACTIONS (2)
  - Rash generalised [Unknown]
  - Dermatitis allergic [Unknown]
